FAERS Safety Report 8976336 (Version 1)
Quarter: 2012Q4

REPORT INFORMATION
  Report Type: Report from Study
  Country: DE (occurrence: DE)
  Receive Date: 20121220
  Receipt Date: 20121220
  Transmission Date: 20130627
  Serious: Yes (Death, Hospitalization)
  Sender: FDA-Public Use
  Company Number: DE-ELI_LILLY_AND_COMPANY-DE201212006394

PATIENT
  Age: 68 Year
  Sex: Male
  Weight: 74 kg

DRUGS (8)
  1. PEMETREXED [Suspect]
     Indication: NON-SMALL CELL LUNG CANCER
     Dosage: 500 mg/m2, 1 in 3 weeks
     Route: 042
     Dates: start: 20100204
  2. BEVACIZUMAB [Suspect]
     Indication: NON-SMALL CELL LUNG CANCER
     Dosage: 7.5 mg/kg, 1 in 3 weeks
     Route: 042
     Dates: start: 20100204
  3. AMARYL [Concomitant]
     Dosage: 2 mg, UNK
     Dates: end: 20100401
  4. LANTUS [Concomitant]
     Dosage: UNK
     Dates: end: 20100401
  5. SPIRIVA [Concomitant]
     Dosage: 40 mg, UNK
     Dates: end: 20100401
  6. LAFOL [Concomitant]
     Dosage: UNK
     Dates: start: 20100125, end: 20100401
  7. LAFOL [Concomitant]
     Dosage: 0.4 mg, UNK
  8. OXIS [Concomitant]
     Dosage: 24 mg, UNK
     Dates: end: 20100401

REACTIONS (1)
  - Pneumocystis jiroveci pneumonia [Fatal]
